FAERS Safety Report 8509825-4 (Version None)
Quarter: 2012Q3

REPORT INFORMATION
  Report Type: 
  Country: None (occurrence: None)
  Receive Date: 20120713
  Receipt Date: 20120702
  Transmission Date: 20120928
  Serious: No
  Sender: FDA-Public Use
  Company Number: JP-JNJFOC-20120702278

PATIENT
  Sex: Female

DRUGS (1)
  1. GOLIMUMAB [Suspect]
     Indication: RHEUMATOID ARTHRITIS
     Route: 058
     Dates: start: 20090428, end: 20091111

REACTIONS (1)
  - OVARIAN NEOPLASM [None]
